FAERS Safety Report 7455878-4 (Version None)
Quarter: 2011Q2

REPORT INFORMATION
  Report Type: 
  Country: None (occurrence: None)
  Receive Date: 20110503
  Receipt Date: 20110427
  Transmission Date: 20111010
  Serious: Yes (Other)
  Sender: FDA-Public Use
  Company Number: A0924769A

PATIENT
  Age: 61 Year
  Sex: Female

DRUGS (5)
  1. ADVAIR DISKUS 100/50 [Concomitant]
  2. VENTOLIN [Suspect]
     Indication: ASTHMA
     Dosage: 2PUFF FOUR TIMES PER DAY
     Route: 055
     Dates: start: 19910101
  3. THYROID MEDICATION [Concomitant]
  4. SIMVASTATIN [Concomitant]
  5. ACTOS [Concomitant]

REACTIONS (4)
  - ASTHMA [None]
  - PRODUCT QUALITY ISSUE [None]
  - DYSPNOEA [None]
  - DRUG INEFFECTIVE [None]
